FAERS Safety Report 25645674 (Version 1)
Quarter: 2025Q3

REPORT INFORMATION
  Report Type: Spontaneous
  Country: GB (occurrence: GB)
  Receive Date: 20250805
  Receipt Date: 20250805
  Transmission Date: 20251020
  Serious: Yes (Other)
  Sender: CHATTEM
  Company Number: None

PATIENT
  Age: 40 Year
  Sex: Female
  Weight: 53 kg

DRUGS (1)
  1. FEXOFENADINE HYDROCHLORIDE [Suspect]
     Active Substance: FEXOFENADINE HYDROCHLORIDE
     Indication: Angioedema
     Dosage: UP TO 180MG ONCE A DAY IN THE MORNING IN 30MG TABLETS
     Dates: start: 20250724, end: 20250726

REACTIONS (12)
  - Swelling face [Unknown]
  - Erythema [Unknown]
  - Skin irritation [Unknown]
  - Sensitive skin [Unknown]
  - Migraine [Unknown]
  - Burning sensation [Unknown]
  - Skin texture abnormal [Unknown]
  - Urticaria [Unknown]
  - Rash [Unknown]
  - Fatigue [Unknown]
  - Urticaria [Recovering/Resolving]
  - Pruritus [Unknown]

NARRATIVE: CASE EVENT DATE: 20250725
